FAERS Safety Report 6413034-2 (Version None)
Quarter: 2009Q4

REPORT INFORMATION
  Report Type: 
  Country: None (occurrence: None)
  Receive Date: 20091023
  Receipt Date: 20091023
  Transmission Date: 20100525
  Serious: No
  Sender: FDA-Public Use
  Company Number: None

PATIENT
  Age: 51 Year
  Sex: Male
  Weight: 102.0593 kg

DRUGS (1)
  1. ZICAM ZINCUM GLUCONICUM 2X MATRIXX INITIATIVES, INC [Suspect]
     Indication: NASOPHARYNGITIS
     Dosage: ONE EVERY 4 HOURS NASAL 07/10
     Route: 045
     Dates: start: 20081214, end: 20090207

REACTIONS (11)
  - AMNESIA [None]
  - ANOSMIA [None]
  - DYSPNOEA [None]
  - EAR PRURITUS [None]
  - INSOMNIA [None]
  - MIDDLE INSOMNIA [None]
  - NASAL CONGESTION [None]
  - NASAL DISCOMFORT [None]
  - RHINORRHOEA [None]
  - SINUS HEADACHE [None]
  - SNORING [None]
